FAERS Safety Report 4662639-8 (Version None)
Quarter: 2005Q2

REPORT INFORMATION
  Report Type: 
  Country: None (occurrence: None)
  Receive Date: 20050512
  Receipt Date: 20050422
  Transmission Date: 20051028
  Serious: Yes (Hospitalization, Other)
  Sender: FDA-Public Use
  Company Number: GBS050417232

PATIENT
  Age: 23 Year
  Sex: Male

DRUGS (2)
  1. DULOXETINE HYDROCHLORIDE [Suspect]
     Indication: ALCOHOLISM
     Dosage: 60 MG
     Dates: start: 20050301
  2. DIAZEPAM [Concomitant]

REACTIONS (5)
  - DRUG DOSE OMISSION [None]
  - EYE SWELLING [None]
  - HYPERSENSITIVITY [None]
  - SWELLING FACE [None]
  - URTICARIA [None]
